FAERS Safety Report 10060665 (Version 1)
Quarter: 2014Q2

REPORT INFORMATION
  Report Type: Spontaneous
  Country: GB (occurrence: GB)
  Receive Date: 20140404
  Receipt Date: 20140404
  Transmission Date: 20141212
  Serious: Yes (Other)
  Sender: FDA-Public Use
  Company Number: GB-009507513-1404GBR000509

PATIENT
  Age: 74 Year
  Sex: Female
  Weight: 61.68 kg

DRUGS (3)
  1. SIMVASTATIN [Suspect]
     Dosage: 40 MG, UNK
     Route: 048
     Dates: start: 2013, end: 20140308
  2. AMOXICILLIN (+) CLAVULANATE POTASSIUM [Suspect]
     Dosage: 500/125MG
     Route: 048
     Dates: start: 20140308, end: 20140308
  3. ENALAPRIL MALEATE [Concomitant]

REACTIONS (2)
  - Hallucination, visual [Recovered/Resolved]
  - Drug interaction [Unknown]
